FAERS Safety Report 5293076-3 (Version None)
Quarter: 2007Q2

REPORT INFORMATION
  Report Type: 
  Country: None (occurrence: None)
  Receive Date: 20070411
  Receipt Date: 20070328
  Transmission Date: 20071010
  Serious: Yes (Hospitalization, Other)
  Sender: FDA-Public Use
  Company Number: PHNU2007DE01099

PATIENT
  Age: 75 Year
  Sex: Female
  Weight: 80 kg

DRUGS (3)
  1. EXELON [Suspect]
     Indication: DEMENTIA ALZHEIMER'S TYPE
     Dosage: 1.5 MG, BID
     Route: 048
     Dates: start: 20061117
  2. EXELON [Suspect]
     Dosage: 3 MG, BID
     Route: 048
  3. ATACAND [Concomitant]
     Dosage: 8/12.5 MG / DAY
     Route: 048

REACTIONS (2)
  - DEMENTIA [None]
  - HYPERTENSIVE CRISIS [None]
